FAERS Safety Report 4361094-5 (Version None)
Quarter: 2004Q2

REPORT INFORMATION
  Report Type: 
  Country: None (occurrence: None)
  Receive Date: 20040520
  Receipt Date: 20040517
  Transmission Date: 20050107
  Serious: Yes (Hospitalization)
  Sender: FDA-Public Use
  Company Number: US-ROCHE-367817

PATIENT
  Age: 56 Year
  Sex: Male
  Weight: 92.5 kg

DRUGS (15)
  1. CAPECITABINE [Suspect]
     Dosage: FOR 14 DAYS FOLLOWED BY 7 DAYS REST EVERY 21 DAYS.
     Route: 048
     Dates: start: 20031208, end: 20031212
  2. CAPECITABINE [Suspect]
     Route: 048
     Dates: start: 20031213
  3. ERLOTINIB [Suspect]
     Route: 048
     Dates: start: 20031208, end: 20031212
  4. ERLOTINIB [Suspect]
     Route: 048
     Dates: start: 20031213
  5. PREVACID [Concomitant]
  6. REMERON [Concomitant]
  7. PANCREASE [Concomitant]
  8. PROPRANOLOL [Concomitant]
  9. ATIVAN [Concomitant]
  10. FLONASE [Concomitant]
  11. OXYCODONE [Concomitant]
  12. KETOCONAZOLE [Concomitant]
  13. TEMOVATE [Concomitant]
  14. WESTCORT [Concomitant]
  15. AXERT [Concomitant]

REACTIONS (1)
  - FOOD POISONING [None]
